FAERS Safety Report 7681112-6 (Version None)
Quarter: 2011Q3

REPORT INFORMATION
  Report Type: 
  Country: None (occurrence: None)
  Receive Date: 20110812
  Receipt Date: 20110810
  Transmission Date: 20111222
  Serious: Yes (Other)
  Sender: FDA-Public Use
  Company Number: US-PFIZER INC-2011184712

PATIENT
  Sex: Male
  Weight: 89.342 kg

DRUGS (2)
  1. EXFORGE [Concomitant]
     Indication: HYPERTENSION
     Dosage: UNK
  2. ALPRAZOLAM [Suspect]
     Indication: ANXIETY
     Dosage: 0.5 MG, UNK
     Dates: start: 20110808

REACTIONS (4)
  - ANGER [None]
  - FEELING ABNORMAL [None]
  - TREMOR [None]
  - HALLUCINATION [None]
